FAERS Safety Report 7360941-2 (Version None)
Quarter: 2011Q1

REPORT INFORMATION
  Report Type: 
  Country: None (occurrence: None)
  Receive Date: 20110318
  Receipt Date: 20110315
  Transmission Date: 20110831
  Serious: Yes (Death, Hospitalization, Other)
  Sender: FDA-Public Use
  Company Number: IT-ELI_LILLY_AND_COMPANY-IT201009005878

PATIENT
  Sex: Male

DRUGS (4)
  1. ALIMTA [Suspect]
     Dosage: 680 MG/ CYCLE
     Route: 042
     Dates: start: 20101022, end: 20101112
  2. CISPLATIN [Concomitant]
     Indication: LUNG ADENOCARCINOMA
     Dosage: 100 MG, UNKNOWN
     Route: 042
     Dates: start: 20100308, end: 20100617
  3. ALIMTA [Suspect]
     Indication: LUNG ADENOCARCINOMA
     Dosage: 850 MG/ CYCLE
     Route: 058
     Dates: start: 20100308
  4. VITAMINS NOS [Concomitant]
     Indication: SUPPLEMENTATION THERAPY
     Dosage: UNK, UNKNOWN
     Route: 065

REACTIONS (2)
  - THROMBOCYTOPENIA [None]
  - BONE MARROW DISORDER [None]
